FAERS Safety Report 10889602 (Version 1)
Quarter: 2015Q1

REPORT INFORMATION
  Report Type: Spontaneous
  Country: US (occurrence: US)
  Receive Date: 20150305
  Receipt Date: 20150305
  Transmission Date: 20150721
  Serious: No
  Sender: FDA-Public Use
  Company Number: US-GLAXOSMITHKLINE-US2015013388

PATIENT
  Age: 57 Year
  Sex: Male

DRUGS (3)
  1. LOSARTAN [Concomitant]
     Active Substance: LOSARTAN
  2. SORIATANE [Suspect]
     Active Substance: ACITRETIN
     Indication: PSORIASIS
     Dosage: 25 MG, QD
     Route: 048
     Dates: start: 201102
  3. LIPITOR [Concomitant]
     Active Substance: ATORVASTATIN CALCIUM

REACTIONS (2)
  - Blood glucose increased [Unknown]
  - Nasopharyngitis [Recovering/Resolving]

NARRATIVE: CASE EVENT DATE: 20150102
